FAERS Safety Report 18703393 (Version 3)
Quarter: 2021Q1

REPORT INFORMATION
  Report Type: Spontaneous
  Country: US (occurrence: US)
  Receive Date: 20210105
  Receipt Date: 20210302
  Transmission Date: 20210419
  Serious: Yes (Hospitalization, Other)
  Sender: FDA-Public Use
  Company Number: US-BRISTOL-MYERS SQUIBB COMPANY-BMS-2020-113194

PATIENT
  Age: 66 Year
  Sex: Female

DRUGS (1)
  1. APIXABAN [Suspect]
     Active Substance: APIXABAN
     Indication: CEREBROVASCULAR ACCIDENT PROPHYLAXIS
     Dosage: 5 MILLIGRAM, BID
     Route: 065

REACTIONS (6)
  - International normalised ratio increased [Unknown]
  - Haemodynamic instability [Unknown]
  - Prothrombin time prolonged [Unknown]
  - Haemoglobin decreased [Unknown]
  - Haemoperitoneum [Unknown]
  - Activated partial thromboplastin time prolonged [Unknown]
